FAERS Safety Report 5720267-7 (Version None)
Quarter: 2008Q2

REPORT INFORMATION
  Report Type: 
  Country: None (occurrence: None)
  Receive Date: 20080428
  Receipt Date: 20080416
  Transmission Date: 20081010
  Serious: Yes (Hospitalization, Disabling)
  Sender: FDA-Public Use
  Company Number: US-ROCHE-910290015001

PATIENT
  Age: 53 Year
  Sex: Male
  Weight: 82 kg

DRUGS (11)
  1. INTERFERON ALFA-2A [Suspect]
     Dosage: ON DAYS 1 AND 4 OF EACH TREATMENT WEEK
     Route: 058
     Dates: start: 19900122
  2. INTERFERON ALFA-2A [Suspect]
     Dosage: DOSAGE DECREASED BY 50% FOLLOWING FIRST CYCLE.
     Route: 058
  3. INTERFERON ALFA-2A [Suspect]
     Dosage: DOSAGE INCREASED TO SCHEDULED DOSE AFTER 8 CYCLES OF TREATMENT.
     Route: 058
     Dates: end: 19910401
  4. INTERLEUKIN-2 [Suspect]
     Dosage: DOSAGE: 2X10^6 U/M2 FOR FOUR CONSECUTIVE WEEKS FOLLOWED BY 2 WEEKS REST
     Route: 041
     Dates: start: 19900122
  5. INTERLEUKIN-2 [Suspect]
     Dosage: DOSAGE DECREASED BY 50%.
     Route: 041
  6. INTERLEUKIN-2 [Suspect]
     Dosage: DOSAGE INCREASED TO SCHEDULED DOSE AFTER 8 CYCLES
     Route: 041
     Dates: end: 19910401
  7. INDOMETHACIN [Concomitant]
     Dosage: PRIOR TO ADMINISTRATION OF INTERFERON ALFA
     Route: 048
  8. SUCRALFATE [Concomitant]
     Dosage: PRIOR TO INTERFERON ALFA ADMINISTRATION
     Route: 048
  9. ACETAMINOPHEN [Concomitant]
     Dosage: PRIOR TO INTERFERON ALFA ADMINISTRATION
     Route: 048
  10. PROCHLORPERAZINE [Concomitant]
     Indication: NAUSEA
     Route: 048
  11. DIPHENOXYLATE HCL [Concomitant]
     Indication: DIARRHOEA
     Dosage: DRUG REPORTED AS DIPHENOXYLATE HCL/ATROPINE SULFATE
     Route: 048

REACTIONS (4)
  - ABDOMINAL PAIN [None]
  - DECREASED APPETITE [None]
  - DIABETES MELLITUS [None]
  - HYPOTENSION [None]
